FAERS Safety Report 6388144-9 (Version None)
Quarter: 2009Q4

REPORT INFORMATION
  Report Type: 
  Country: None (occurrence: None)
  Receive Date: 20091005
  Receipt Date: 20090929
  Transmission Date: 20100525
  Serious: Yes (Hospitalization)
  Sender: FDA-Public Use
  Company Number: US-AVENTIS-200921102GDDC

PATIENT
  Age: 68 Year
  Sex: Female
  Weight: 220 kg

DRUGS (3)
  1. LANTUS [Suspect]
     Dates: start: 19980101, end: 20090909
  2. INSULIN LISPRO [Suspect]
     Dates: start: 19980101, end: 20090609
  3. CODE UNBROKEN [Suspect]
     Route: 030
     Dates: start: 20081007, end: 20081007

REACTIONS (3)
  - HYPOGLYCAEMIA [None]
  - PNEUMONIA [None]
  - WOUND [None]
